FAERS Safety Report 9994790 (Version 1)
Quarter: 2014Q1

REPORT INFORMATION
  Report Type: Spontaneous
  Country: FR (occurrence: FR)
  Receive Date: 20140311
  Receipt Date: 20140311
  Transmission Date: 20141002
  Serious: No
  Sender: FDA-Public Use
  Company Number: FR-JNJFOC-20140218534

PATIENT
  Sex: Male

DRUGS (1)
  1. DUROGESIC [Suspect]
     Indication: PRODUCT USED FOR UNKNOWN INDICATION
     Route: 062

REACTIONS (2)
  - Constipation [Unknown]
  - Treatment noncompliance [Unknown]
